FAERS Safety Report 23945422 (Version 4)
Quarter: 2024Q3

REPORT INFORMATION
  Report Type: Spontaneous
  Country: US (occurrence: US)
  Receive Date: 20240606
  Receipt Date: 20240830
  Transmission Date: 20241017
  Serious: No
  Sender: PFIZER
  Company Number: US-PFIZER INC-202400182405

PATIENT
  Age: 13 Year
  Sex: Male

DRUGS (1)
  1. GENOTROPIN [Suspect]
     Active Substance: SOMATROPIN
     Dosage: 2 MG, 6 TIMES A WEEK
     Dates: start: 20240524

REACTIONS (5)
  - Drug dose omission by device [Unknown]
  - Device use issue [Unknown]
  - Device mechanical issue [Unknown]
  - Device malfunction [Unknown]
  - Product communication issue [Unknown]

NARRATIVE: CASE EVENT DATE: 20240501
